FAERS Safety Report 14232121 (Version 1)
Quarter: 2017Q4

REPORT INFORMATION
  Report Type: Spontaneous
  Country: US (occurrence: US)
  Receive Date: 20171128
  Receipt Date: 20171128
  Transmission Date: 20180321
  Serious: No
  Sender: FDA-Public Use
  Company Number: US-BIOGEN-2017BI00486321

PATIENT
  Age: 21 Year
  Sex: Female

DRUGS (1)
  1. TYSABRI [Suspect]
     Active Substance: NATALIZUMAB
     Indication: MULTIPLE SCLEROSIS
     Route: 065
     Dates: start: 20170501

REACTIONS (9)
  - Fall [Unknown]
  - Syncope [Unknown]
  - Hypotension [Unknown]
  - Menstrual disorder [Unknown]
  - Gait disturbance [Unknown]
  - Amnesia [Unknown]
  - Weight decreased [Unknown]
  - Cognitive disorder [Unknown]
  - Cold-stimulus headache [Unknown]

NARRATIVE: CASE EVENT DATE: 201708
